FAERS Safety Report 17470513 (Version 1)
Quarter: 2020Q1

REPORT INFORMATION
  Report Type: Spontaneous
  Country: US (occurrence: US)
  Receive Date: 20200227
  Receipt Date: 20200227
  Transmission Date: 20200409
  Serious: Yes (Hospitalization)
  Sender: FDA-Public Use
  Company Number: US-JAZZ-2019-US-014556

PATIENT

DRUGS (1)
  1. CLOZAPINE. [Suspect]
     Active Substance: CLOZAPINE
     Indication: IRRITABILITY
     Dosage: MG, QD
     Route: 048

REACTIONS (2)
  - Eosinophilia [Unknown]
  - Intentional product use issue [Unknown]
